FAERS Safety Report 7671819-9 (Version None)
Quarter: 2011Q3

REPORT INFORMATION
  Report Type: 
  Country: None (occurrence: None)
  Receive Date: 20110809
  Receipt Date: 20110726
  Transmission Date: 20111222
  Serious: Yes (Hospitalization)
  Sender: FDA-Public Use
  Company Number: DE-UCBSA-037891

PATIENT
  Sex: Male

DRUGS (4)
  1. AZITHROMYCIN [Suspect]
     Dates: end: 20110701
  2. SOLIRIS [Suspect]
     Indication: HAEMOLYTIC URAEMIC SYNDROME
     Dosage: FOUR DOSES OF 900 MG WEEKLY
     Dates: start: 20110527, end: 20110617
  3. SOLIRIS [Suspect]
     Dosage: 1200 MG
     Dates: start: 20110623, end: 20110623
  4. KEPPRA [Suspect]
     Dates: end: 20110701

REACTIONS (1)
  - RASH MACULO-PAPULAR [None]
